FAERS Safety Report 7740210-9 (Version None)
Quarter: 2011Q3

REPORT INFORMATION
  Report Type: 
  Country: None (occurrence: None)
  Receive Date: 20110909
  Receipt Date: 20110909
  Transmission Date: 20111222
  Serious: No
  Sender: FDA-Public Use
  Company Number: None

PATIENT
  Age: 29 Year
  Sex: Female
  Weight: 99.79 kg

DRUGS (1)
  1. THYROID TAB [Suspect]
     Indication: HYPOTHYROIDISM
     Dosage: 1 TABLET
     Route: 048
     Dates: start: 20110818, end: 20110827

REACTIONS (5)
  - HEADACHE [None]
  - TREMOR [None]
  - GAIT DISTURBANCE [None]
  - PAIN IN EXTREMITY [None]
  - FATIGUE [None]
